FAERS Safety Report 8318833 (Version 2)
Quarter: 2013Q3

REPORT INFORMATION
  Report Type: Spontaneous
  Country: None (occurrence: None)
  Receive Date: 20111222
  Receipt Date: 20130701
  Transmission Date: 20140515
  Serious: Yes (Other)
  Sender: FDA-Public Use
  Company Number: AUR-APL-2011-06154

PATIENT
  Age: 45 Year
  Sex: Male

DRUGS (6)
  1. ZOLPIDEM [Suspect]
     Indication: SLEEP DISORDER
     Dosage: 10 MG
  2. MIRTAZAPINE (MIRTAZAPINE) [Concomitant]
  3. LORAZEPAM [Concomitant]
  4. ESCITALOPRAM OXALATE [Concomitant]
  5. PROPRANOLOL [Concomitant]
  6. DISULFIRAM [Concomitant]

REACTIONS (13)
  - Blood pressure fluctuation [None]
  - Blood pressure increased [None]
  - Delirium [None]
  - Drug interaction [None]
  - Drug withdrawal syndrome [None]
  - Drug administration error [None]
  - Incorrect dose administered [None]
  - Cognitive disorder [None]
  - Agitation [None]
  - Refusal of treatment by patient [None]
  - Incontinence [None]
  - Disorientation [None]
  - Overdose [None]
